FAERS Safety Report 6999789-7 (Version None)
Quarter: 2010Q3

REPORT INFORMATION
  Report Type: 
  Country: None (occurrence: None)
  Receive Date: 20100920
  Receipt Date: 20100909
  Transmission Date: 20110219
  Serious: Yes (Other)
  Sender: FDA-Public Use
  Company Number: PHHY2010AU61001

PATIENT
  Sex: Female

DRUGS (1)
  1. GENTEAL (NVO) [Suspect]
     Indication: DRY EYE
     Dosage: UNK,
     Route: 047
     Dates: start: 20100818, end: 20100825

REACTIONS (1)
  - EYE PAIN [None]
